FAERS Safety Report 4643314-2 (Version None)
Quarter: 2005Q2

REPORT INFORMATION
  Report Type: 
  Country: None (occurrence: None)
  Receive Date: 20050422
  Receipt Date: 20050314
  Transmission Date: 20051028
  Serious: Yes (Hospitalization, Other)
  Sender: FDA-Public Use
  Company Number: 2005044671

PATIENT
  Age: 82 Year
  Sex: Female
  Weight: 60.3284 kg

DRUGS (8)
  1. LIPITOR [Suspect]
     Indication: BLOOD CHOLESTEROL INCREASED
     Dosage: 10 MG (10 MG, 1 IN 1 D) ORAL
     Route: 048
     Dates: start: 20000101
  2. DILTIAZEM [Concomitant]
  3. METOPROLOL SUCCINATE [Concomitant]
  4. WARFARIN SODIUM [Concomitant]
  5. HYZAAR [Concomitant]
  6. ICAPS (MINERALS NOS , VITAMINS NOS) [Concomitant]
  7. CENTRUM SILVER (ASCORBIC ACID, CALCIUM, MINERALS NOS, RETINOL, TOCOPHE [Concomitant]
  8. ASCRIPTIN (ACETYLSALICYLIC ACID, ALUMINUM HYDROXIDE, MAGNESIUM HYDROXI [Concomitant]

REACTIONS (5)
  - ATRIAL FIBRILLATION [None]
  - BLINDNESS UNILATERAL [None]
  - BODY HEIGHT DECREASED [None]
  - EYE HAEMORRHAGE [None]
  - MACULAR DEGENERATION [None]
